FAERS Safety Report 5407874-6 (Version None)
Quarter: 2007Q3

REPORT INFORMATION
  Report Type: 
  Country: None (occurrence: None)
  Receive Date: 20070713
  Receipt Date: 20070430
  Transmission Date: 20080115
  Serious: No
  Sender: FDA-Public Use
  Company Number: 2007SP001561

PATIENT
  Age: 71 Year
  Sex: Female
  Weight: 68.0396 kg

DRUGS (5)
  1. LUNESTA [Suspect]
     Indication: INSOMNIA
     Dosage: 2 MG;ORAL; 4 MG;ORAL; 3 MG;ORAL; 6 MG;ORAL
     Route: 048
     Dates: start: 20070401
  2. LUNESTA [Suspect]
     Indication: INSOMNIA
     Dosage: 2 MG;ORAL; 4 MG;ORAL; 3 MG;ORAL; 6 MG;ORAL
     Route: 048
     Dates: start: 20070401
  3. LUNESTA [Suspect]
     Indication: INSOMNIA
     Dosage: 2 MG;ORAL; 4 MG;ORAL; 3 MG;ORAL; 6 MG;ORAL
     Route: 048
     Dates: start: 20070401
  4. LUNESTA [Suspect]
     Indication: INSOMNIA
     Dosage: 2 MG;ORAL; 4 MG;ORAL; 3 MG;ORAL; 6 MG;ORAL
     Route: 048
     Dates: start: 20070401
  5. LUNESTA [Suspect]
     Indication: INSOMNIA
     Dosage: 2 MG;ORAL; 4 MG;ORAL; 3 MG;ORAL; 6 MG;ORAL
     Route: 048
     Dates: start: 20070401

REACTIONS (2)
  - DRUG INEFFECTIVE [None]
  - INSOMNIA [None]
